FAERS Safety Report 22390092 (Version 1)
Quarter: 2023Q2

REPORT INFORMATION
  Report Type: Spontaneous
  Country: US (occurrence: None)
  Receive Date: 20230531
  Receipt Date: 20230531
  Transmission Date: 20230721
  Serious: No
  Sender: FDA-Public Use
  Company Number: 2023A123944

PATIENT
  Sex: Male

DRUGS (1)
  1. PULMICORT FLEXHALER [Suspect]
     Active Substance: BUDESONIDE
     Route: 055

REACTIONS (5)
  - Oesophageal disorder [Unknown]
  - Product prescribing issue [Unknown]
  - Device malfunction [Unknown]
  - Device use issue [Unknown]
  - Drug dose omission by device [Unknown]
